FAERS Safety Report 8982460 (Version 1)
Quarter: 2012Q4

REPORT INFORMATION
  Report Type: 
  Country: US (occurrence: US)
  Receive Date: 20121212
  Receipt Date: 20121212
  Transmission Date: 20130627
  Serious: Yes (Hospitalization)
  Sender: FDA-Public Use
  Company Number: US-ASTELLAS-1105003

PATIENT
  Age: 73 Year
  Sex: Female

DRUGS (4)
  1. TARCEVA [Suspect]
     Indication: TRACHEAL CANCER
     Route: 065
     Dates: start: 20060307
  2. TARCEVA [Suspect]
     Indication: BRONCHIAL CARCINOMA
  3. TARCEVA [Suspect]
     Indication: NON-SMALL CELL LUNG CANCER
  4. TARCEVA [Suspect]
     Indication: CHRONIC LYMPHOCYTIC LEUKAEMIA

REACTIONS (3)
  - Disease progression [Unknown]
  - Rash [Recovered/Resolved]
  - Oral pain [Unknown]
